FAERS Safety Report 8201057-2 (Version None)
Quarter: 2012Q1

REPORT INFORMATION
  Report Type: 
  Country: None (occurrence: None)
  Receive Date: 20120312
  Receipt Date: 20111220
  Transmission Date: 20120608
  Serious: No
  Sender: FDA-Public Use
  Company Number: US-ABBOTT-11P-163-0886487-00

PATIENT
  Sex: Female

DRUGS (2)
  1. LUPRON DEPOT [Suspect]
     Indication: ENDOMETRIOSIS
     Dosage: HOLDING OFF ON TAKING MEDICATION
     Route: 050
     Dates: start: 20110922
  2. BIRTH CONTROL [Concomitant]
     Indication: CONTRACEPTION
     Dates: start: 20110825

REACTIONS (1)
  - MIGRAINE [None]
